FAERS Safety Report 5123655-5 (Version None)
Quarter: 2006Q3

REPORT INFORMATION
  Report Type: 
  Country: None (occurrence: None)
  Receive Date: 20060911
  Receipt Date: 20060608
  Transmission Date: 20061208
  Serious: No
  Sender: FDA-Public Use
  Company Number: S06-USA-02257-01

PATIENT
  Age: 76 Year
  Sex: Female

DRUGS (6)
  1. NAMENDA [Suspect]
     Indication: DEMENTIA
     Dosage: 5 MG QD PO
     Route: 048
     Dates: start: 20060607
  2. FOSAMAX [Concomitant]
  3. DIGOXIN [Concomitant]
  4. SOTALOL HYDROCHLORIDE [Concomitant]
  5. CALCIUM [Concomitant]
  6. VITAMIN D [Concomitant]

REACTIONS (1)
  - DIZZINESS [None]
